FAERS Safety Report 8845668 (Version 1)
Quarter: 2012Q4

REPORT INFORMATION
  Report Type: 
  Country: US (occurrence: US)
  Receive Date: 20121017
  Receipt Date: 20121017
  Transmission Date: 20130627
  Serious: Yes (Hospitalization)
  Sender: FDA-Public Use
  Company Number: US-ROCHE-1146263

PATIENT
  Sex: Male
  Weight: 7.92 kg

DRUGS (3)
  1. NUTROPIN AQ [Suspect]
     Indication: DWARFISM
     Dosage: 0.3 mg/kg/week
     Route: 050
     Dates: start: 19971120
  2. NUTROPIN AQ [Suspect]
     Indication: GROWTH HORMONE DEFICIENCY
  3. CORTISOL [Concomitant]

REACTIONS (3)
  - Hypoglycaemia [Unknown]
  - Crying [Unknown]
  - Weight gain poor [Unknown]
